FAERS Safety Report 12882036 (Version 3)
Quarter: 2016Q4

REPORT INFORMATION
  Report Type: Spontaneous
  Country: JP (occurrence: JP)
  Receive Date: 20161025
  Receipt Date: 20161205
  Transmission Date: 20170207
  Serious: Yes (Other)
  Sender: FDA-Public Use
  Company Number: JP-JNJFOC-20161020988

PATIENT
  Age: 88 Year
  Sex: Male

DRUGS (13)
  1. REMINYL [Suspect]
     Active Substance: GALANTAMINE
     Indication: DEMENTIA ALZHEIMER^S TYPE
     Route: 048
     Dates: start: 20160511, end: 20160613
  2. AZOSEMIDE [Concomitant]
     Active Substance: AZOSEMIDE
     Route: 048
  3. REMINYL [Suspect]
     Active Substance: GALANTAMINE
     Indication: DEMENTIA ALZHEIMER^S TYPE
     Route: 048
     Dates: start: 201607, end: 20160817
  4. METFORMIN HYDROCHLORIDE. [Concomitant]
     Active Substance: METFORMIN HYDROCHLORIDE
     Route: 048
  5. REMINYL [Suspect]
     Active Substance: GALANTAMINE
     Indication: DEMENTIA ALZHEIMER^S TYPE
     Route: 048
     Dates: start: 20160818, end: 20161004
  6. CILOSTAZOL. [Concomitant]
     Active Substance: CILOSTAZOL
     Route: 048
  7. SPIRONOLACTONE. [Concomitant]
     Active Substance: SPIRONOLACTONE
     Route: 065
  8. TRAZENTA [Concomitant]
     Active Substance: LINAGLIPTIN
     Route: 048
  9. GLIMEPIRIDE. [Concomitant]
     Active Substance: GLIMEPIRIDE
     Route: 048
  10. NICORANDIL [Concomitant]
     Active Substance: NICORANDIL
     Route: 065
  11. FEBURIC [Concomitant]
     Active Substance: FEBUXOSTAT
     Route: 048
  12. THYRADIN S [Concomitant]
     Active Substance: LEVOTHYROXINE SODIUM
     Route: 048
  13. REMINYL [Suspect]
     Active Substance: GALANTAMINE
     Indication: DEMENTIA ALZHEIMER^S TYPE
     Route: 048
     Dates: start: 20160614, end: 201607

REACTIONS (4)
  - Generalised erythema [Recovering/Resolving]
  - Haemorrhage subcutaneous [Recovering/Resolving]
  - Eczema [Recovering/Resolving]
  - Decreased appetite [Recovered/Resolved]

NARRATIVE: CASE EVENT DATE: 201607
